FAERS Safety Report 7125263-3 (Version None)
Quarter: 2010Q4

REPORT INFORMATION
  Report Type: 
  Country: None (occurrence: None)
  Receive Date: 20101129
  Receipt Date: 20100430
  Transmission Date: 20110411
  Serious: Yes (Death)
  Sender: FDA-Public Use
  Company Number: FR-CELGENEUS-056-50794-10071892

PATIENT
  Age: 69 Year
  Sex: Female

DRUGS (2)
  1. VIDAZA [Suspect]
     Route: 065
     Dates: start: 20090901, end: 20091201
  2. EPOGEN [Concomitant]
     Route: 065

REACTIONS (1)
  - MYELODYSPLASTIC SYNDROME [None]
